FAERS Safety Report 8317226-7 (Version None)
Quarter: 2012Q2

REPORT INFORMATION
  Report Type: 
  Country: None (occurrence: None)
  Receive Date: 20120427
  Receipt Date: 20120418
  Transmission Date: 20120825
  Serious: Yes (Hospitalization, Other)
  Sender: FDA-Public Use
  Company Number: US-BAYER-2012-039376

PATIENT
  Age: 28 Year
  Sex: Female
  Weight: 145.13 kg

DRUGS (10)
  1. ACETAZOLAMIDE [Concomitant]
     Dosage: 250 MG, BID
     Route: 048
  2. COUMADIN [Concomitant]
     Dosage: 7.5 MG, DAILY
  3. KLONOPIN [Concomitant]
     Dosage: 2 MG, PRN
     Route: 048
  4. DARVOCET [Concomitant]
  5. LEVAQUIN [Concomitant]
  6. TRAMADOL HCL [Concomitant]
  7. YAZ [Suspect]
     Dosage: UNK
     Dates: start: 20080801, end: 20080901
  8. LEXAPRO [Concomitant]
     Dosage: 10 MG, DAILY
  9. GLUCOPHAGE [Concomitant]
     Dosage: 500 MG, BID
     Route: 048
  10. M.V.I. [Concomitant]

REACTIONS (2)
  - CHOLECYSTITIS CHRONIC [None]
  - DEEP VEIN THROMBOSIS [None]
